FAERS Safety Report 25651447 (Version 1)
Quarter: 2025Q3

REPORT INFORMATION
  Report Type: Spontaneous
  Country: AR (occurrence: AR)
  Receive Date: 20250806
  Receipt Date: 20250806
  Transmission Date: 20251020
  Serious: Yes (Hospitalization)
  Sender: MYLAN
  Company Number: AR-MYLANLABS-2025M1065734

PATIENT
  Age: 33 Year
  Sex: Female

DRUGS (8)
  1. GABAPENTIN [Suspect]
     Active Substance: GABAPENTIN
     Indication: Holmes tremor
     Dosage: 600 MILLIGRAM, BID, TITRATED TO MAXIMUM DOSE
  2. PRAMIPEXOLE [Suspect]
     Active Substance: PRAMIPEXOLE
     Indication: Holmes tremor
     Dosage: 3 MILLIGRAM, QD, EXTENDED RELEASE; TITRATED TO MAXIMUM DOSE
  3. CARBIDOPA\LEVODOPA [Suspect]
     Active Substance: CARBIDOPA\LEVODOPA
     Indication: Holmes tremor
     Dosage: UNK, QID, TITRATED TO MAXIMUM DOSE
  4. VALPROIC ACID [Suspect]
     Active Substance: VALPROIC ACID
     Indication: Holmes tremor
     Dosage: 500 MILLIGRAM, BID, TITRATED TO MAXIMUM DOSE
  5. LEVETIRACETAM [Suspect]
     Active Substance: LEVETIRACETAM
     Indication: Holmes tremor
     Dosage: 1 GRAM, BID, TITRATED TO MAXIMUM DOSE
  6. QUETIAPINE [Suspect]
     Active Substance: QUETIAPINE
     Indication: Holmes tremor
     Dosage: 50 MILLIGRAM, BID, TITRATED TO MAXIMUM DOSE
  7. CLONAZEPAM [Suspect]
     Active Substance: CLONAZEPAM
     Indication: Holmes tremor
     Dosage: 2 MILLIGRAM, BID, TITRATED TO MAXIMUM DOSE
  8. AGOMELATINE [Suspect]
     Active Substance: AGOMELATINE
     Indication: Holmes tremor
     Dosage: 50 MILLIGRAM, QD, TITRATED TO MAXIMUM DOSE

REACTIONS (2)
  - Therapy non-responder [Unknown]
  - Off label use [Unknown]
